FAERS Safety Report 25410725 (Version 2)
Quarter: 2025Q2

REPORT INFORMATION
  Report Type: Spontaneous
  Country: US (occurrence: US)
  Receive Date: 20250609
  Receipt Date: 20250618
  Transmission Date: 20250716
  Serious: No
  Sender: CSL BEHRING
  Company Number: US-BEH-2025207939

PATIENT
  Sex: Female

DRUGS (12)
  1. ZEMAIRA [Suspect]
     Active Substance: .ALPHA.1-PROTEINASE INHIBITOR HUMAN
     Indication: Alpha-1 antitrypsin deficiency
     Dosage: 3830 MG, QW
     Route: 042
  2. ALBUTEROL [Concomitant]
     Active Substance: ALBUTEROL
  3. AMLODIPINE [Concomitant]
     Active Substance: AMLODIPINE BESYLATE
  4. ANORO ELLIPTA [Concomitant]
     Active Substance: UMECLIDINIUM BROMIDE\VILANTEROL TRIFENATATE
  5. ARMOUR THYROID [Concomitant]
     Active Substance: THYROID, PORCINE
  6. CELECOXIB [Concomitant]
     Active Substance: CELECOXIB
  7. DOXYCYCLINE [Concomitant]
     Active Substance: DOXYCYCLINE
  8. METFORMIN [Concomitant]
     Active Substance: METFORMIN HYDROCHLORIDE
  9. PREDNISONE [Concomitant]
     Active Substance: PREDNISONE
  10. SPIRONOLACTONE [Concomitant]
     Active Substance: SPIRONOLACTONE
  11. TRAZODONE HCL [Concomitant]
     Active Substance: TRAZODONE HYDROCHLORIDE
  12. TRELEGY ELLIPTA [Concomitant]
     Active Substance: FLUTICASONE FUROATE\UMECLIDINIUM BROMIDE\VILANTEROL TRIFENATATE

REACTIONS (2)
  - Muscle strain [Not Recovered/Not Resolved]
  - Anxiety [Not Recovered/Not Resolved]
